FAERS Safety Report 22172601 (Version 1)
Quarter: 2023Q2

REPORT INFORMATION
  Report Type: Spontaneous
  Country: GB (occurrence: GB)
  Receive Date: 20230404
  Receipt Date: 20230404
  Transmission Date: 20230722
  Serious: Yes (Life-Threatening)
  Sender: FDA-Public Use
  Company Number: GB-MHRA-MED-202303301515140050-NMDCT

PATIENT
  Sex: Female

DRUGS (2)
  1. MISOPROSTOL [Suspect]
     Active Substance: MISOPROSTOL
     Dosage: 400MCG
     Dates: start: 20230330, end: 20230330
  2. DICLOFENAC [Suspect]
     Active Substance: DICLOFENAC
     Dosage: 100MG
     Dates: start: 20230330, end: 20230330

REACTIONS (5)
  - Anaphylactic reaction [Recovered/Resolved]
  - Rash [Unknown]
  - Swelling face [Unknown]
  - Nasal obstruction [Unknown]
  - Throat irritation [Unknown]

NARRATIVE: CASE EVENT DATE: 20230330
